FAERS Safety Report 7784775-X (Version None)
Quarter: 2011Q3

REPORT INFORMATION
  Report Type: 
  Country: None (occurrence: None)
  Receive Date: 20110928
  Receipt Date: 20110922
  Transmission Date: 20111222
  Serious: Yes (Other)
  Sender: FDA-Public Use
  Company Number: DK-PFIZER INC-2011226309

PATIENT
  Age: 17 Year
  Sex: Male

DRUGS (1)
  1. DEPO-MEDROL [Suspect]
     Indication: JOINT SWELLING
     Dosage: 1 ML, 40 MG/ML
     Route: 030
     Dates: start: 20090317, end: 20090317

REACTIONS (5)
  - LIP INJURY [None]
  - TOOTH FRACTURE [None]
  - TOOTH AVULSION [None]
  - SYNCOPE [None]
  - FALL [None]
